FAERS Safety Report 6839138-8 (Version None)
Quarter: 2010Q2

REPORT INFORMATION
  Report Type: 
  Country: None (occurrence: None)
  Receive Date: 20100625
  Receipt Date: 20090521
  Transmission Date: 20101027
  Serious: Yes (Other)
  Sender: FDA-Public Use
  Company Number: VISP-PR-0905S-0220

PATIENT
  Age: 70 Year
  Sex: Male

DRUGS (1)
  1. VISIPAQUE [Suspect]
     Indication: VENOUS INSUFFICIENCY
     Dosage: 90 ML, SINGLE DOSE, I.V.
     Route: 042
     Dates: start: 20090513, end: 20090513

REACTIONS (1)
  - RENAL FAILURE ACUTE [None]
